FAERS Safety Report 25384112 (Version 1)
Quarter: 2025Q2

REPORT INFORMATION
  Report Type: Spontaneous
  Country: IT (occurrence: IT)
  Receive Date: 20250602
  Receipt Date: 20250602
  Transmission Date: 20250716
  Serious: Yes (Other)
  Sender: STRIDES
  Company Number: IT-STRIDES ARCOLAB LIMITED-2025SP006690

PATIENT
  Age: 22 Year
  Sex: Male
  Weight: 81 kg

DRUGS (3)
  1. ALPRAZOLAM [Suspect]
     Active Substance: ALPRAZOLAM
     Indication: Mental disorder
     Route: 065
  2. PAROXETINE [Suspect]
     Active Substance: PAROXETINE
     Indication: Antidepressant therapy
     Route: 065
  3. LITHIUM CARBONATE [Suspect]
     Active Substance: LITHIUM CARBONATE
     Indication: Mental disorder
     Route: 065

REACTIONS (2)
  - Serotonin syndrome [Unknown]
  - Off label use [Unknown]
